FAERS Safety Report 15625211 (Version 2)
Quarter: 2019Q2

REPORT INFORMATION
  Report Type: Report from Study
  Country: US (occurrence: US)
  Receive Date: 20181116
  Receipt Date: 20190606
  Transmission Date: 20190711
  Serious: No
  Sender: FDA-Public Use
  Company Number: PHEH2018US047401

PATIENT
  Sex: Female

DRUGS (1)
  1. GILENYA [Suspect]
     Active Substance: FINGOLIMOD HYDROCHLORIDE
     Indication: RELAPSING MULTIPLE SCLEROSIS
     Dosage: 0.5 MG, QD (ONCE DAILY)
     Route: 048

REACTIONS (6)
  - Nausea [Unknown]
  - Anxiety [Unknown]
  - Memory impairment [Unknown]
  - Vertigo [Unknown]
  - Decreased appetite [Unknown]
  - Eye pain [Unknown]
